FAERS Safety Report 14566020 (Version 1)
Quarter: 2018Q1

REPORT INFORMATION
  Report Type: Spontaneous
  Country: FR (occurrence: FR)
  Receive Date: 20180223
  Receipt Date: 20180223
  Transmission Date: 20180509
  Serious: Yes (Hospitalization)
  Sender: FDA-Public Use
  Company Number: FR-AUROBINDO-AUR-APL-2018-008946

PATIENT
  Age: 78 Year
  Sex: Male
  Weight: 89 kg

DRUGS (2)
  1. FLUCONAZOLE ARROW? 200 MG CAPSULE [Suspect]
     Active Substance: FLUCONAZOLE
     Indication: PRODUCT USED FOR UNKNOWN INDICATION
     Dosage: 2 DF, ONCE A DAY
     Route: 048
     Dates: start: 20180121
  2. LEVOFLOXACIN ARROW 500MG [Suspect]
     Active Substance: LEVOFLOXACIN
     Indication: URINARY TRACT INFECTION
     Dosage: 1 DF, ONCE A DAY
     Route: 048
     Dates: start: 20180117, end: 20180121

REACTIONS (2)
  - Eosinophilia [Not Recovered/Not Resolved]
  - Rash [Not Recovered/Not Resolved]

NARRATIVE: CASE EVENT DATE: 20180122
